FAERS Safety Report 4332696-7 (Version None)
Quarter: 2004Q1

REPORT INFORMATION
  Report Type: 
  Country: None (occurrence: None)
  Receive Date: 20040330
  Receipt Date: 20040316
  Transmission Date: 20041129
  Serious: No
  Sender: FDA-Public Use
  Company Number: 2004201833JP

PATIENT
  Age: 78 Year
  Sex: Male

DRUGS (11)
  1. XALATAN [Suspect]
     Indication: ANGLE CLOSURE GLAUCOMA
     Dosage: 1 GTT, QD, OPHTHALMIC
     Route: 047
     Dates: start: 20040212, end: 20040219
  2. ALTAT (ROXATIDINE ACETATE HYDROCHLORIDE) CAPSULE [Concomitant]
  3. ANTOBRON [Concomitant]
  4. ALLOPURINOL [Concomitant]
  5. AMAZOLON (AMANTADINE HYDROCHLORIDE) [Concomitant]
  6. CILINIDIPINE (CILNIDIPINE) TABLET [Concomitant]
  7. THEO-DUR [Concomitant]
  8. TAKEPRON CAPSULE [Concomitant]
  9. DOGMATIL CAPSULE [Concomitant]
  10. MAGNESIUM OXIDE [Concomitant]
  11. LUVOX TABLET [Concomitant]

REACTIONS (2)
  - ANGLE CLOSURE GLAUCOMA [None]
  - CONDITION AGGRAVATED [None]
